FAERS Safety Report 9657981 (Version 1)
Quarter: 2013Q4

REPORT INFORMATION
  Report Type: Spontaneous
  Country: DE (occurrence: None)
  Receive Date: 20131029
  Receipt Date: 20131029
  Transmission Date: 20140711
  Serious: Yes (Life-Threatening)
  Sender: FDA-Public Use
  Company Number: DSM-2013-00983

PATIENT
  Age: 78 Year
  Sex: Female
  Weight: 68 kg

DRUGS (3)
  1. VOTUM PLUS [Suspect]
     Indication: HYPERTENSION
     Dosage: 20/12.5MG (1 IN 1D) ORAL
     Route: 048
     Dates: end: 201308
  2. BISOPROLOL [Concomitant]
  3. EUTHYROX [Concomitant]

REACTIONS (3)
  - Diarrhoea [None]
  - Weight decreased [None]
  - Gastrointestinal disorder [None]
